FAERS Safety Report 4337368-0 (Version None)
Quarter: 2004Q2

REPORT INFORMATION
  Report Type: 
  Country: None (occurrence: None)
  Receive Date: 20040413
  Receipt Date: 20040401
  Transmission Date: 20050107
  Serious: Yes (Hospitalization)
  Sender: FDA-Public Use
  Company Number: 200411403FR

PATIENT
  Age: 66 Year
  Sex: Male
  Weight: 76 kg

DRUGS (8)
  1. TRIATEC [Suspect]
     Indication: ESSENTIAL HYPERTENSION
     Dosage: DOSE UNIT: UNITS
     Route: 048
     Dates: end: 20040223
  2. DAONIL [Suspect]
     Indication: DIABETES MELLITUS
     Route: 048
     Dates: end: 20040223
  3. IXPRIM [Concomitant]
     Route: 048
     Dates: end: 20040222
  4. BIPROFENID [Concomitant]
     Indication: MYALGIA
     Route: 048
     Dates: start: 20040116, end: 20040222
  5. BIPROFENID [Concomitant]
     Indication: MYOSITIS
     Route: 048
     Dates: start: 20040116, end: 20040222
  6. GLUCOPHAGE [Concomitant]
     Indication: DIABETES MELLITUS
     Route: 048
     Dates: end: 20040222
  7. PRAXILENE [Concomitant]
     Route: 048
     Dates: end: 20040222
  8. MYOLASTAN [Concomitant]
     Dates: end: 20040222

REACTIONS (6)
  - CONVULSION [None]
  - DRUG INTERACTION [None]
  - FALL [None]
  - HYPOGLYCAEMIA [None]
  - OVERDOSE [None]
  - WEIGHT DECREASED [None]
